FAERS Safety Report 8759858 (Version 1)
Quarter: 2012Q4

REPORT INFORMATION
  Report Type: 
  Country: BR (occurrence: BR)
  Receive Date: 20120829
  Receipt Date: 20120829
  Transmission Date: 20130627
  Serious: Yes (Other)
  Sender: FDA-Public Use
  Company Number: BR-ASTRAZENECA-2012SE60951

PATIENT
  Age: 90 Year
  Sex: Female

DRUGS (2)
  1. ATACAND HCT [Suspect]
     Dosage: 8/12.5 ONE TABLET OD
     Route: 048
  2. ATACAND HCT [Suspect]
     Dosage: 8/12.5 TWO TABLET OD
     Route: 048

REACTIONS (1)
  - Cerebrovascular accident [Unknown]
